FAERS Safety Report 7158223-7 (Version None)
Quarter: 2010Q4

REPORT INFORMATION
  Report Type: 
  Country: None (occurrence: None)
  Receive Date: 20101214
  Receipt Date: 20100325
  Transmission Date: 20110411
  Serious: No
  Sender: FDA-Public Use
  Company Number: US-ASTRAZENECA-2010SE13277

PATIENT
  Age: 77 Year
  Sex: Female
  Weight: 56.7 kg

DRUGS (4)
  1. CRESTOR [Suspect]
     Route: 048
     Dates: start: 20100301
  2. TRIAMTERENE [Concomitant]
  3. ACTONEL [Concomitant]
  4. VITAMIN E [Concomitant]

REACTIONS (1)
  - TONGUE PIGMENTATION [None]
